FAERS Safety Report 6511696-2 (Version None)
Quarter: 2009Q4

REPORT INFORMATION
  Report Type: 
  Country: None (occurrence: None)
  Receive Date: 20091222
  Receipt Date: 20090511
  Transmission Date: 20100525
  Serious: No
  Sender: FDA-Public Use
  Company Number: US-ASTRAZENECA-2009UW12142

PATIENT
  Sex: Female

DRUGS (2)
  1. CRESTOR [Suspect]
     Indication: BLOOD CHOLESTEROL INCREASED
     Route: 048
     Dates: start: 20090401, end: 20090401
  2. ANTIBIOTIC [Concomitant]

REACTIONS (3)
  - DYSURIA [None]
  - OLIGURIA [None]
  - VAGINAL INFECTION [None]
